FAERS Safety Report 8407678-6 (Version None)
Quarter: 2012Q2

REPORT INFORMATION
  Report Type: 
  Country: None (occurrence: None)
  Receive Date: 20120604
  Receipt Date: 20120531
  Transmission Date: 20120825
  Serious: No
  Sender: FDA-Public Use
  Company Number: US-PFIZER INC-2012132553

PATIENT
  Sex: Female
  Weight: 85.714 kg

DRUGS (5)
  1. LYRICA [Suspect]
     Indication: BURNING SENSATION
  2. LYRICA [Suspect]
     Indication: BACK PAIN
     Dosage: UNK, DAILY
     Dates: end: 20120530
  3. LYRICA [Suspect]
     Indication: FLANK PAIN
  4. LYRICA [Suspect]
     Indication: HERPES ZOSTER
     Dosage: UNK,3X/DAY
     Dates: start: 20120101
  5. LYRICA [Suspect]
     Indication: PAIN

REACTIONS (3)
  - HEART RATE INCREASED [None]
  - INAPPROPRIATE SCHEDULE OF DRUG ADMINISTRATION [None]
  - FLUSHING [None]
